FAERS Safety Report 6487312-5 (Version None)
Quarter: 2009Q4

REPORT INFORMATION
  Report Type: 
  Country: None (occurrence: None)
  Receive Date: 20091210
  Receipt Date: 20091201
  Transmission Date: 20100525
  Serious: No
  Sender: FDA-Public Use
  Company Number: US-B.I. PHARMACEUTICALS,INC./RIDGEFIELD-2009-BP-13936BP

PATIENT
  Sex: Male

DRUGS (10)
  1. COMBIVENT [Suspect]
     Indication: CHRONIC OBSTRUCTIVE PULMONARY DISEASE
     Dosage: 4 PUF
     Route: 055
     Dates: start: 20091001
  2. COMBIVENT [Suspect]
     Dosage: 8 PUF
     Route: 055
     Dates: start: 20090601, end: 20091001
  3. FINASTERIDE [Concomitant]
     Indication: PROSTATOMEGALY
  4. LORAZEPAM [Concomitant]
     Indication: INSOMNIA
  5. LISINOPRIL [Concomitant]
     Indication: HYPERTENSION
  6. HYDROCHLOROTHIAZIDE [Concomitant]
     Indication: HYPERTENSION
  7. PLAVIX [Concomitant]
     Indication: PERIPHERAL ARTERIAL OCCLUSIVE DISEASE
  8. MELATONIN [Concomitant]
     Indication: INSOMNIA
  9. ASPIRIN [Concomitant]
     Indication: PROPHYLAXIS
  10. LIPITOR [Concomitant]
     Indication: BLOOD CHOLESTEROL INCREASED

REACTIONS (4)
  - BRONCHITIS [None]
  - CHRONIC OBSTRUCTIVE PULMONARY DISEASE [None]
  - DYSPNOEA [None]
  - INCREASED UPPER AIRWAY SECRETION [None]
